FAERS Safety Report 6098890-2 (Version None)
Quarter: 2009Q1

REPORT INFORMATION
  Report Type: 
  Country: None (occurrence: None)
  Receive Date: 20090302
  Receipt Date: 20090220
  Transmission Date: 20090719
  Serious: Yes (Life-Threatening, Other)
  Sender: FDA-Public Use
  Company Number: TW-ABBOTT-09P-153-0558340-00

PATIENT
  Age: 70 Year
  Sex: Male

DRUGS (5)
  1. CISATRACURIUM [Suspect]
     Indication: ENDOTRACHEAL INTUBATION
  2. PROPOFOL [Concomitant]
     Indication: ANAESTHESIA
     Route: 042
  3. LIDOCAINE [Concomitant]
     Indication: ANAESTHESIA
  4. FENTANYL [Concomitant]
     Indication: ANAESTHESIA
  5. SEVOFLURANE [Concomitant]
     Indication: ANAESTHESIA

REACTIONS (2)
  - ACUTE CORONARY SYNDROME [None]
  - ANAPHYLACTIC SHOCK [None]
